FAERS Safety Report 26187953 (Version 1)
Quarter: 2025Q4

REPORT INFORMATION
  Report Type: Spontaneous
  Country: SG (occurrence: SG)
  Receive Date: 20251222
  Receipt Date: 20251222
  Transmission Date: 20260118
  Serious: Yes (Death, Hospitalization, Other)
  Sender: MYLAN
  Company Number: SG-MYLANLABS-2025M1109425

PATIENT
  Age: 73 Year
  Sex: Female
  Weight: 59 kg

DRUGS (11)
  1. GEMCITABINE [Suspect]
     Active Substance: GEMCITABINE
     Indication: B-cell lymphoma refractory
     Dosage: 1630 MILLIGRAM
  2. CYTARABINE [Suspect]
     Active Substance: CYTARABINE
     Indication: B-cell lymphoma refractory
     Dosage: 6000 MILLIGRAM, BID
     Dates: start: 20201115
  3. CISPLATIN [Suspect]
     Active Substance: CISPLATIN
     Indication: B-cell lymphoma refractory
     Dosage: 120 MILLIGRAM
  4. CYCLOPHOSPHAMIDE [Suspect]
     Active Substance: CYCLOPHOSPHAMIDE
     Indication: B-cell lymphoma refractory
     Dosage: 1200 MILLIGRAM, QD
     Dates: start: 20201204, end: 20201206
  5. DEXAMETHASONE [Suspect]
     Active Substance: DEXAMETHASONE
     Indication: B-cell lymphoma refractory
     Dosage: 160 MILLIGRAM, QD
     Dates: start: 20201024
  6. FLUDARABINE [Suspect]
     Active Substance: FLUDARABINE PHOSPHATE
     Indication: B-cell lymphoma refractory
     Dosage: 120 MILLIGRAM, QD
     Dates: start: 20201204, end: 20201206
  7. IBRUTINIB [Suspect]
     Active Substance: IBRUTINIB
     Indication: B-cell lymphoma refractory
     Dosage: UNK
     Route: 061
  8. LENALIDOMIDE [Suspect]
     Active Substance: LENALIDOMIDE
     Indication: B-cell lymphoma refractory
     Dosage: 40 MILLIGRAM, QD
     Route: 061
     Dates: start: 20201130
  9. RITUXIMAB [Suspect]
     Active Substance: RITUXIMAB
     Indication: B-cell lymphoma refractory
     Dosage: 650 MILLIGRAM
  10. TISAGENLECLEUCEL [Suspect]
     Active Substance: TISAGENLECLEUCEL
     Indication: B-cell lymphoma refractory
     Dosage: UNK
  11. TOCILIZUMAB [Suspect]
     Active Substance: TOCILIZUMAB
     Indication: B-cell lymphoma refractory
     Dosage: UNK

REACTIONS (2)
  - Bacterial infection [Fatal]
  - Pseudomonal sepsis [Fatal]

NARRATIVE: CASE EVENT DATE: 20201222
